FAERS Safety Report 8055994-2 (Version None)
Quarter: 2012Q1

REPORT INFORMATION
  Report Type: 
  Country: None (occurrence: None)
  Receive Date: 20120119
  Receipt Date: 20120117
  Transmission Date: 20120608
  Serious: Yes (Other)
  Sender: FDA-Public Use
  Company Number: NL-ROCHE-1030832

PATIENT
  Age: 21 Year
  Sex: Male

DRUGS (2)
  1. ISOTRETINOIN [Suspect]
     Dosage: DOSE REDUCED
  2. ISOTRETINOIN [Suspect]
     Indication: ACNE
     Route: 048
     Dates: start: 20110915

REACTIONS (1)
  - BASEDOW'S DISEASE [None]
